FAERS Safety Report 7717832-4 (Version None)
Quarter: 2011Q3

REPORT INFORMATION
  Report Type: 
  Country: None (occurrence: None)
  Receive Date: 20110830
  Receipt Date: 20110818
  Transmission Date: 20111222
  Serious: Yes (Hospitalization, Other)
  Sender: FDA-Public Use
  Company Number: JP-SANOFI-AVENTIS-2011SA054944

PATIENT
  Sex: Male

DRUGS (3)
  1. AVASTIN [Suspect]
     Indication: COLORECTAL CANCER RECURRENT
     Route: 041
  2. OXALIPLATIN [Suspect]
     Indication: COLORECTAL CANCER RECURRENT
     Route: 041
  3. XELODA [Suspect]
     Indication: COLORECTAL CANCER RECURRENT
     Route: 048

REACTIONS (2)
  - COLITIS ISCHAEMIC [None]
  - ILEUS [None]
